FAERS Safety Report 8864246 (Version 1)
Quarter: 2012Q4

REPORT INFORMATION
  Report Type: 
  Country: US (occurrence: US)
  Receive Date: 20121024
  Receipt Date: 20121024
  Transmission Date: 20130627
  Serious: No
  Sender: FDA-Public Use
  Company Number: US-AMGEN-USASP2011066543

PATIENT
  Age: 73 Year
  Sex: Female
  Weight: 56.69 kg

DRUGS (14)
  1. ENBREL [Suspect]
     Indication: PRODUCT USED FOR UNKNOWN INDICATION
     Dosage: 50 mg, qwk
     Route: 058
  2. PLAQUENIL                          /00072602/ [Concomitant]
     Dosage: 200 mg, UNK
     Route: 048
  3. METHOTREXATE [Concomitant]
     Dosage: 2.5 mg, UNK
     Route: 048
  4. DIOVAN [Concomitant]
     Dosage: 160 mg, UNK
     Route: 048
  5. PRAVASTATIN [Concomitant]
     Dosage: 10 mg, UNK
     Route: 048
  6. CHLOROTHIAZIDE [Concomitant]
     Dosage: 250 mg, UNK
     Route: 048
  7. FOLIC ACID [Concomitant]
     Dosage: 1 mg, UNK
     Route: 048
  8. DILTIAZEM [Concomitant]
     Dosage: 120 mg, qd
     Route: 048
  9. PREVACID [Concomitant]
     Dosage: 15 mg, UNK
  10. VITAMIN B-12 [Concomitant]
     Dosage: UNK
     Route: 048
  11. VITAMIN D /00107901/ [Concomitant]
     Dosage: 1000 IU, UNK
     Route: 048
  12. CALCIUM + VITAMIN D                /01483701/ [Concomitant]
     Dosage: UNK
     Route: 048
  13. ASPIRIN [Concomitant]
     Dosage: 81 mg, UNK
     Route: 048
  14. PREDNISONE [Concomitant]
     Dosage: 1 mg, UNK
     Route: 048

REACTIONS (5)
  - Abdominal pain upper [Unknown]
  - Arthralgia [Unknown]
  - Myalgia [Unknown]
  - Diarrhoea [Unknown]
  - Injection site reaction [Unknown]
